FAERS Safety Report 4837520-1 (Version None)
Quarter: 2005Q4

REPORT INFORMATION
  Report Type: 
  Country: None (occurrence: None)
  Receive Date: 20051128
  Receipt Date: 20051006
  Transmission Date: 20060501
  Serious: Yes (Disabling)
  Sender: FDA-Public Use
  Company Number: DE-GLAXOSMITHKLINE-D0047670A

PATIENT
  Age: 26 Year
  Sex: Female
  Weight: 63 kg

DRUGS (1)
  1. MALARONE [Suspect]
     Indication: MALARIA PROPHYLAXIS
     Dosage: 1TAB PER DAY
     Route: 048
     Dates: start: 20050904, end: 20050915

REACTIONS (2)
  - ALOPECIA [None]
  - ALOPECIA AREATA [None]
